FAERS Safety Report 5958507-1 (Version None)
Quarter: 2008Q4

REPORT INFORMATION
  Report Type: 
  Country: None (occurrence: None)
  Receive Date: 20081119
  Receipt Date: 20081111
  Transmission Date: 20090506
  Serious: Yes (Hospitalization, Other)
  Sender: FDA-Public Use
  Company Number: PHEH2008US10132

PATIENT
  Sex: Female

DRUGS (1)
  1. ZELNORM [Suspect]

REACTIONS (4)
  - AMNESIA [None]
  - BLINDNESS [None]
  - LOSS OF CONSCIOUSNESS [None]
  - VIRUS SEROLOGY TEST POSITIVE [None]
